FAERS Safety Report 4771046-9 (Version None)
Quarter: 2005Q3

REPORT INFORMATION
  Report Type: 
  Country: None (occurrence: None)
  Receive Date: 20050914
  Receipt Date: 20050829
  Transmission Date: 20060218
  Serious: Yes (Other)
  Sender: FDA-Public Use
  Company Number: EWC050945597

PATIENT
  Sex: 0

DRUGS (2)
  1. ZYPREXA [Suspect]
  2. AMITRIPTYLINE HCL [Concomitant]

REACTIONS (5)
  - DRUG EXPOSURE DURING PREGNANCY [None]
  - HYPOGLYCAEMIA NEONATAL [None]
  - POOR WEIGHT GAIN NEONATAL [None]
  - PREMATURE BABY [None]
  - SEDATION [None]
